FAERS Safety Report 24284006 (Version 3)
Quarter: 2024Q3

REPORT INFORMATION
  Report Type: Report from Study
  Country: US (occurrence: US)
  Receive Date: 20240905
  Receipt Date: 20240930
  Transmission Date: 20241016
  Serious: No
  Sender: ACADIA PHARMACEUTICALS
  Company Number: US-ACADIA PHARMACEUTICALS INC.-ACA-2024-PIM-004744

PATIENT
  Sex: Female

DRUGS (8)
  1. NUPLAZID [Suspect]
     Active Substance: PIMAVANSERIN TARTRATE
     Indication: Parkinson^s disease psychosis
     Dosage: 34 MILLIGRAM, QD
     Route: 065
     Dates: start: 20240801, end: 20240804
  2. QUETIAPINE [Suspect]
     Active Substance: QUETIAPINE
  3. ZONISAMIDE [Concomitant]
     Active Substance: ZONISAMIDE
  4. KEPPRA [Concomitant]
     Active Substance: LEVETIRACETAM
  5. LEXAPRO [Concomitant]
     Active Substance: ESCITALOPRAM OXALATE
  6. CLONAZEPAM [Concomitant]
     Active Substance: CLONAZEPAM
  7. SINEMET [Concomitant]
     Active Substance: CARBIDOPA\LEVODOPA
  8. ALENDRONATE [Concomitant]
     Active Substance: ALENDRONATE SODIUM

REACTIONS (4)
  - Paradoxical drug reaction [Recovered/Resolved]
  - Drug ineffective [Recovered/Resolved]
  - Agitation [Unknown]
  - Confusional state [Unknown]
